FAERS Safety Report 14392410 (Version 1)
Quarter: 2018Q1

REPORT INFORMATION
  Report Type: Report from Study
  Country: JP (occurrence: JP)
  Receive Date: 20180116
  Receipt Date: 20180116
  Transmission Date: 20180509
  Serious: Yes (Other)
  Sender: FDA-Public Use
  Company Number: JP-BRACCO-2018JP00068

PATIENT
  Age: 70 Year
  Sex: Female

DRUGS (1)
  1. IOPAMIDOL [Suspect]
     Active Substance: IOPAMIDOL
     Indication: ANGIOGRAM
     Dosage: 270 ML, SINGLE
     Route: 013

REACTIONS (2)
  - Contrast encephalopathy [Recovered/Resolved]
  - Extra dose administered [Recovered/Resolved]
